FAERS Safety Report 26161098 (Version 1)
Quarter: 2025Q4

REPORT INFORMATION
  Report Type: Spontaneous
  Country: US (occurrence: US)
  Receive Date: 20251216
  Receipt Date: 20251216
  Transmission Date: 20260118
  Serious: Yes (Hospitalization)
  Sender: JOHNSON AND JOHNSON
  Company Number: US-JNJFOC-20251214912

PATIENT
  Age: 53 Year
  Sex: Female

DRUGS (1)
  1. INFLIXIMAB [Suspect]
     Active Substance: INFLIXIMAB
     Indication: Sarcoidosis
     Route: 041

REACTIONS (6)
  - Pulmonary alveolar haemorrhage [Recovering/Resolving]
  - Encephalopathy [Recovering/Resolving]
  - Respiratory failure [Recovering/Resolving]
  - Haematuria [Recovering/Resolving]
  - Off label use [Unknown]
  - Product dose omission issue [Unknown]
